FAERS Safety Report 19085790 (Version 1)
Quarter: 2021Q2

REPORT INFORMATION
  Report Type: Spontaneous
  Country: US (occurrence: US)
  Receive Date: 20210402
  Receipt Date: 20210402
  Transmission Date: 20210717
  Serious: Yes (Other)
  Sender: FDA-Public Use
  Company Number: US-DRREDDYS-USA/USA/21/0133780

PATIENT
  Age: 38 Year
  Sex: Male

DRUGS (5)
  1. TENOFOVIR [Suspect]
     Active Substance: TENOFOVIR
     Indication: KAPOSI^S SARCOMA AIDS RELATED
  2. IMIQUIMOD. [Suspect]
     Active Substance: IMIQUIMOD
     Indication: KAPOSI^S SARCOMA AIDS RELATED
     Dosage: IMIQUIMOD 5% CREAM THREE TIMES WEEKLY WAS ADDED TO THE TREATMENT FOR 12 WEEKS
     Route: 062
  3. DOXORUBICIN HYDROCHLORIDE LIPOSOME INJECTION 20 MG/10 ML (2 MG/ML) AND [Suspect]
     Active Substance: DOXORUBICIN HYDROCHLORIDE
     Indication: KAPOSI^S SARCOMA AIDS RELATED
     Dosage: DESPITE THREE CYCLES OF DOXORUBICIN
     Route: 042
  4. ELVITEGRAVIR [Suspect]
     Active Substance: ELVITEGRAVIR
     Indication: KAPOSI^S SARCOMA AIDS RELATED
  5. EMTRICITABINE [Suspect]
     Active Substance: EMTRICITABINE
     Indication: KAPOSI^S SARCOMA AIDS RELATED

REACTIONS (1)
  - Drug ineffective [Unknown]
